FAERS Safety Report 23638453 (Version 1)
Quarter: 2024Q1

REPORT INFORMATION
  Report Type: Spontaneous
  Country: IN (occurrence: IN)
  Receive Date: 20240315
  Receipt Date: 20240315
  Transmission Date: 20240410
  Serious: Yes (Other)
  Sender: FDA-Public Use
  Company Number: IN-002147023-NVSC2023IN280212

PATIENT
  Age: 46 Year
  Sex: Female

DRUGS (1)
  1. TASIGNA [Suspect]
     Active Substance: NILOTINIB
     Indication: Product used for unknown indication
     Dosage: 300 MG, BID
     Route: 048

REACTIONS (6)
  - Malignant glaucoma [Unknown]
  - Diabetes mellitus [Unknown]
  - Blindness [Unknown]
  - Iron deficiency anaemia [Unknown]
  - Diabetic neuropathy [Unknown]
  - Coronary artery disease [Unknown]
